FAERS Safety Report 4937813-3 (Version None)
Quarter: 2006Q1

REPORT INFORMATION
  Report Type: 
  Country: None (occurrence: None)
  Receive Date: 20060309
  Receipt Date: 20050927
  Transmission Date: 20060701
  Serious: Yes (Hospitalization)
  Sender: FDA-Public Use
  Company Number: US-MERCK-0510USA00628

PATIENT
  Age: 62 Year
  Sex: Female
  Weight: 114 kg

DRUGS (5)
  1. VIOXX [Suspect]
     Indication: OSTEOARTHRITIS
     Route: 048
     Dates: start: 20020401, end: 20020501
  2. VIOXX [Suspect]
     Route: 048
     Dates: start: 20020501, end: 20020801
  3. VIOXX [Suspect]
     Route: 048
     Dates: start: 20021101, end: 20040201
  4. VIOXX [Suspect]
     Route: 048
     Dates: start: 20040301, end: 20040801
  5. VIOXX [Suspect]
     Route: 048
     Dates: end: 20040901

REACTIONS (10)
  - BLOOD PRESSURE INCREASED [None]
  - CEREBROVASCULAR ACCIDENT [None]
  - CHEST PAIN [None]
  - HEADACHE [None]
  - NEPHROLITHIASIS [None]
  - OEDEMA PERIPHERAL [None]
  - OVERDOSE [None]
  - PAIN IN EXTREMITY [None]
  - PNEUMONIA [None]
  - VISUAL DISTURBANCE [None]
